FAERS Safety Report 7113455-9 (Version None)
Quarter: 2010Q4

REPORT INFORMATION
  Report Type: 
  Country: None (occurrence: None)
  Receive Date: 20101119
  Receipt Date: 20101103
  Transmission Date: 20110411
  Serious: No
  Sender: FDA-Public Use
  Company Number: US-PFIZER INC-2010143917

PATIENT
  Age: 74 Year
  Sex: Female
  Weight: 68.934 kg

DRUGS (1)
  1. ADVIL COLD AND SINUS [Suspect]
     Dosage: 1 CAPSULE X 1
     Route: 048
     Dates: start: 20101102, end: 20101102

REACTIONS (4)
  - LIP SWELLING [None]
  - RASH ERYTHEMATOUS [None]
  - RASH PRURITIC [None]
  - VOMITING [None]
